FAERS Safety Report 7076340-7 (Version None)
Quarter: 2010Q4

REPORT INFORMATION
  Report Type: 
  Country: None (occurrence: None)
  Receive Date: 20101101
  Receipt Date: 20101022
  Transmission Date: 20110411
  Serious: Yes (Other)
  Sender: FDA-Public Use
  Company Number: US-JNJFOC-20101007555

PATIENT
  Age: 50 Year
  Sex: Female

DRUGS (10)
  1. MONISTAT 7 [Suspect]
     Route: 067
  2. MONISTAT 7 [Suspect]
     Indication: VULVOVAGINAL CANDIDIASIS
     Dosage: TOTAL OF 1000 MG
     Route: 067
  3. WARFARIN SODIUM [Interacting]
     Indication: ANTICOAGULANT THERAPY
  4. WARFARIN SODIUM [Interacting]
  5. WARFARIN SODIUM [Interacting]
  6. WARFARIN SODIUM [Interacting]
  7. GLYBURIDE AND METFORMIN HYDROCHLORIDE [Concomitant]
  8. ATORVASTATIN [Concomitant]
  9. LISINOPRIL AND HYDROCHLOROTHIAZIDE [Concomitant]
  10. EXTENDED RELEASE METOPROLOL [Concomitant]

REACTIONS (2)
  - DRUG INTERACTION [None]
  - INTERNATIONAL NORMALISED RATIO INCREASED [None]
